FAERS Safety Report 9099059 (Version 3)
Quarter: 2018Q1

REPORT INFORMATION
  Report Type: Spontaneous
  Country: US (occurrence: US)
  Receive Date: 20130213
  Receipt Date: 20180126
  Transmission Date: 20180509
  Serious: No
  Sender: FDA-Public Use
  Company Number: US-PFIZER INC-2013051731

PATIENT
  Age: 64 Year
  Sex: Female
  Weight: 82.54 kg

DRUGS (8)
  1. DOXEPIN [Suspect]
     Active Substance: DOXEPIN
     Indication: ANXIETY
     Dosage: 25 MG, 1X/DAY (ONCE DAILY AT NIGHT BY MOUTH)
     Route: 048
  2. VALIUM [Concomitant]
     Active Substance: DIAZEPAM
     Indication: DEPRESSION
  3. DOXEPIN [Suspect]
     Active Substance: DOXEPIN
     Indication: DEPRESSION
  4. VALIUM [Concomitant]
     Active Substance: DIAZEPAM
     Indication: PANIC DISORDER
     Dosage: 2.5 MG, 1X/DAY (BY MOUTH WITH THE DOXEPIN) (PRESCRIBED 10MG TABLETS WHICH SHE CUTS IN 4 DIFFERENT PA
     Route: 048
  5. DOXEPIN [Suspect]
     Active Substance: DOXEPIN
     Indication: ANXIETY
     Dosage: UNK
     Dates: start: 2006
  6. DOXEPIN [Suspect]
     Active Substance: DOXEPIN
     Indication: DEPRESSION
     Dosage: 10 MG, UNK
     Dates: start: 2006
  7. DOXEPIN [Suspect]
     Active Substance: DOXEPIN
     Indication: PANIC DISORDER
  8. VALIUM [Concomitant]
     Active Substance: DIAZEPAM
     Indication: ANXIETY
     Dosage: 2 MG, 1X/DAY

REACTIONS (2)
  - Drug hypersensitivity [Unknown]
  - Dermatitis allergic [Unknown]

NARRATIVE: CASE EVENT DATE: 2006
